FAERS Safety Report 8932351 (Version 1)
Quarter: 2012Q4

REPORT INFORMATION
  Report Type: 
  Country: BR (occurrence: BR)
  Receive Date: 20121128
  Receipt Date: 20121128
  Transmission Date: 20130627
  Serious: Yes (Other)
  Sender: FDA-Public Use
  Company Number: BR-JNJFOC-20121111766

PATIENT
  Age: 26 Year
  Sex: Female
  Weight: 78 kg

DRUGS (1)
  1. MICRONOR [Suspect]
     Indication: CONTRACEPTION
     Route: 048
     Dates: start: 20120925

REACTIONS (3)
  - Anaemia [Not Recovered/Not Resolved]
  - Suppressed lactation [Not Recovered/Not Resolved]
  - Medication error [Recovered/Resolved]
